FAERS Safety Report 7756571-0 (Version None)
Quarter: 2011Q3

REPORT INFORMATION
  Report Type: 
  Country: None (occurrence: None)
  Receive Date: 20110916
  Receipt Date: 20110908
  Transmission Date: 20111222
  Serious: Yes (Hospitalization)
  Sender: FDA-Public Use
  Company Number: US-JNJFOC-20110411724

PATIENT
  Sex: Female
  Weight: 59.7 kg

DRUGS (13)
  1. CIPROFLOXACIN [Concomitant]
     Route: 065
  2. WELCHOL [Concomitant]
     Dosage: 625
     Route: 065
  3. REMICADE [Suspect]
     Indication: PSORIASIS
     Route: 042
     Dates: start: 20050201
  4. METHOTREXATE [Concomitant]
     Indication: PSORIASIS
     Route: 065
     Dates: start: 20010101
  5. LISINOPRIL [Concomitant]
     Route: 065
  6. SIMVASTATIN [Concomitant]
     Route: 065
  7. VITAMIN D [Concomitant]
     Dosage: DOSE:400 UNITS
     Route: 065
  8. PHENAZOPYRIDINE HCL TAB [Concomitant]
     Route: 065
  9. ACETAMINOPHEN [Concomitant]
     Indication: PREMEDICATION
  10. FOLIC ACID [Concomitant]
     Dosage: DOSE:400MCG
  11. MOBIC [Concomitant]
     Route: 065
  12. ANTIHISTAMINES [Concomitant]
     Indication: PREMEDICATION
  13. VITAMIN D [Concomitant]
     Dosage: DOSE:50,000 UNITS EVERY MONTH
     Route: 065

REACTIONS (4)
  - DEHYDRATION [None]
  - PANCYTOPENIA [None]
  - DIVERTICULITIS [None]
  - RENAL FAILURE ACUTE [None]
